FAERS Safety Report 8557773-6 (Version None)
Quarter: 2012Q3

REPORT INFORMATION
  Report Type: 
  Country: None (occurrence: None)
  Receive Date: 20120801
  Receipt Date: 20120724
  Transmission Date: 20120928
  Serious: Yes (Hospitalization, Other)
  Sender: FDA-Public Use
  Company Number: NL-ABBOTT-12P-114-0934027-00

PATIENT
  Sex: Female
  Weight: 68.7 kg

DRUGS (6)
  1. METFORMIN HYDROCHLORIDE [Concomitant]
     Indication: PRODUCT USED FOR UNKNOWN INDICATION
  2. HUMIRA [Suspect]
     Indication: PSORIASIS
     Route: 058
     Dates: start: 20111201
  3. METHOTREXATE [Concomitant]
     Indication: PRODUCT USED FOR UNKNOWN INDICATION
  4. FOLIC ACID [Concomitant]
     Indication: PRODUCT USED FOR UNKNOWN INDICATION
  5. METOPROLOL TARTRATE [Concomitant]
     Indication: ANTIALLERGIC THERAPY
  6. LOSARTAN POTASSIUM [Concomitant]
     Indication: CONTRACEPTION
     Route: 048

REACTIONS (14)
  - PYREXIA [None]
  - COUGH [None]
  - HYPOAESTHESIA [None]
  - ARTHROPATHY [None]
  - SYSTEMIC LUPUS ERYTHEMATOSUS [None]
  - CHEST DISCOMFORT [None]
  - FATIGUE [None]
  - NERVOUS SYSTEM DISORDER [None]
  - SARCOIDOSIS [None]
  - DRUG INEFFECTIVE [None]
  - UROSEPSIS [None]
  - HYPOAESTHESIA ORAL [None]
  - RASH [None]
  - URINARY TRACT INFECTION [None]
